FAERS Safety Report 5218152-2 (Version None)
Quarter: 2007Q1

REPORT INFORMATION
  Report Type: 
  Country: None (occurrence: None)
  Receive Date: 20061130
  Receipt Date: 20060912
  Transmission Date: 20070707
  Serious: Yes (Hospitalization)
  Sender: FDA-Public Use
  Company Number: US200609003333

PATIENT
  Age: 22 Year
  Sex: Male

DRUGS (4)
  1. ZYPREXA [Suspect]
     Indication: AGITATION
     Dosage: 40 MG, OTHER, UNK
  2. ZYPREXA [Suspect]
     Indication: AGITATION
     Dosage: 20 MG, OTHER, INTRAMUSCULAR
     Route: 030
  3. HALDOL SOLUTAB [Concomitant]
  4. ATIVAN [Concomitant]

REACTIONS (3)
  - DRUG INEFFECTIVE [None]
  - PRESCRIBED OVERDOSE [None]
  - RHABDOMYOLYSIS [None]
